FAERS Safety Report 9849675 (Version 1)
Quarter: 2013Q4

REPORT INFORMATION
  Report Type: Spontaneous
  Country: US (occurrence: None)
  Receive Date: 20131226
  Receipt Date: 20131226
  Transmission Date: 20140711
  Serious: Yes (Other)
  Sender: FDA-Public Use
  Company Number: PHEH2012US019181

PATIENT
  Age: 47 Year
  Sex: Female
  Weight: 63.9 kg

DRUGS (12)
  1. AFINITOR (RAD) [Suspect]
     Indication: BREAST CANCER
     Route: 048
     Dates: start: 20120606
  2. EXEMESTANE (EXEMESTANE) [Concomitant]
  3. XGEVA (DENOSUMAB) [Concomitant]
  4. NISTATIN (NYSTATIN) [Concomitant]
  5. LIDOCERM PATCH (LIDOCAINE) [Concomitant]
  6. NORCO (HYDROCODONE BITARTRATE, PARACETAMOL) [Concomitant]
  7. ZOFRAN (ONDANSETRON HYDROCHLORIDE) [Concomitant]
  8. OXYCODONE (OXYCODONE) [Concomitant]
  9. MIRALAX (MACROGOL) [Concomitant]
  10. SENOKOT (SENNA ALEXANDRINA FRUIT) [Concomitant]
  11. ATIVAN (LORAZEPAM) [Concomitant]
  12. XANAX (ALPRAZOLAM) [Concomitant]

REACTIONS (4)
  - Pain in extremity [None]
  - Dyspnoea [None]
  - Neoplasm [None]
  - Malignant neoplasm progression [None]
